FAERS Safety Report 7892800-0 (Version None)
Quarter: 2011Q4

REPORT INFORMATION
  Report Type: 
  Country: None (occurrence: None)
  Receive Date: 20111104
  Receipt Date: 20111027
  Transmission Date: 20120403
  Serious: No
  Sender: FDA-Public Use
  Company Number: US-BAYER-2011-104970

PATIENT
  Sex: Male

DRUGS (1)
  1. ADALAT CC [Suspect]

REACTIONS (2)
  - HYPERTENSION [None]
  - DRUG INEFFECTIVE [None]
